FAERS Safety Report 5325633-X (Version None)
Quarter: 2007Q2

REPORT INFORMATION
  Report Type: 
  Country: None (occurrence: None)
  Receive Date: 20070515
  Receipt Date: 20070504
  Transmission Date: 20071010
  Serious: Yes (Other)
  Sender: FDA-Public Use
  Company Number: FR-PFIZER INC-2007034253

PATIENT
  Sex: Male
  Weight: 58 kg

DRUGS (2)
  1. LYRICA [Suspect]
     Indication: EPILEPSY
     Dosage: DAILY DOSE:450MG
     Route: 048
  2. TEGRETOL [Concomitant]
     Route: 048

REACTIONS (2)
  - CONSTIPATION [None]
  - EPILEPSY [None]
